FAERS Safety Report 8920070 (Version 1)
Quarter: 2012Q4

REPORT INFORMATION
  Report Type: Report from Study
  Country: US (occurrence: US)
  Receive Date: 20121121
  Receipt Date: 20121121
  Transmission Date: 20130627
  Serious: Yes (Other)
  Sender: FDA-Public Use
  Company Number: US-BAYER-2012-118739

PATIENT
  Sex: Female

DRUGS (4)
  1. SORAFENIB (RAF KINASE INHIBITOR) [Suspect]
     Indication: MELANOMA LIMITED TO EXTREMITY
     Dosage: 600 mg, QD, 7 days prior to ILI-M
     Route: 048
  2. SORAFENIB (RAF KINASE INHIBITOR) [Suspect]
     Indication: MELANOMA LIMITED TO EXTREMITY
     Dosage: 600 mg, QD, 7 days after ILI-M
     Route: 048
  3. MELPHALAN [Suspect]
     Indication: MELANOMA LIMITED TO EXTREMITY
     Dosage: ONCE, rapid infusion of melphalan into arterial catheter
     Route: 013
  4. PAPAVERINE [Concomitant]
     Indication: PREMEDICATION
     Dosage: UNK UNK, ONCE
     Route: 013

REACTIONS (1)
  - Blood creatine phosphokinase increased [Unknown]
